FAERS Safety Report 24953713 (Version 4)
Quarter: 2025Q2

REPORT INFORMATION
  Report Type: Spontaneous
  Country: US (occurrence: US)
  Receive Date: 20250211
  Receipt Date: 20250509
  Transmission Date: 20250717
  Serious: Yes (Hospitalization)
  Sender: KARYOPHARM THERAPEUTICS
  Company Number: US-KARYOPHARM-2025KPT000126

PATIENT

DRUGS (15)
  1. XPOVIO [Suspect]
     Active Substance: SELINEXOR
     Indication: Plasma cell myeloma
     Route: 048
     Dates: start: 20250204, end: 2025
  2. XPOVIO [Suspect]
     Active Substance: SELINEXOR
     Route: 048
     Dates: start: 2025
  3. ALFUZOSIN [Concomitant]
     Active Substance: ALFUZOSIN
  4. CIALIS [Concomitant]
     Active Substance: TADALAFIL
  5. CICLOPIROX [Concomitant]
     Active Substance: CICLOPIROX
  6. DEXAMETHASONE [Concomitant]
     Active Substance: DEXAMETHASONE
  7. ELIQUIS [Concomitant]
     Active Substance: APIXABAN
  8. FINASTERIDE [Concomitant]
     Active Substance: FINASTERIDE
  9. FLUTICASONE [Concomitant]
     Active Substance: FLUTICASONE
  10. GABAPENTIN [Concomitant]
     Active Substance: GABAPENTIN
  11. LEVOTHYROXINE [Concomitant]
     Active Substance: LEVOTHYROXINE
  12. LISINOPRIL [Concomitant]
     Active Substance: LISINOPRIL
  13. LUMIGAN [Concomitant]
     Active Substance: BIMATOPROST
  14. ONDANSETRON [Concomitant]
     Active Substance: ONDANSETRON
  15. GLUCOSAMIN + CHONDROITIN [Concomitant]

REACTIONS (5)
  - Pneumonia [Unknown]
  - Influenza [Unknown]
  - Ageusia [Unknown]
  - Asthenia [Unknown]
  - Fatigue [Unknown]

NARRATIVE: CASE EVENT DATE: 20250101
